FAERS Safety Report 6379272-2 (Version None)
Quarter: 2009Q3

REPORT INFORMATION
  Report Type: 
  Country: None (occurrence: None)
  Receive Date: 20090928
  Receipt Date: 20090918
  Transmission Date: 20100115
  Serious: Yes (Death)
  Sender: FDA-Public Use
  Company Number: NZ-PFIZER INC-2009253346

PATIENT
  Age: 84 Year

DRUGS (7)
  1. THALIDOMIDE [Suspect]
     Dosage: 50 MG, DAILY
     Route: 048
     Dates: start: 20071012, end: 20071105
  2. TRANEXAMIC ACID [Concomitant]
     Dosage: DAILY
     Dates: end: 20071101
  3. SALBUTAMOL [Concomitant]
     Dosage: DAILY
     Route: 055
     Dates: end: 20071101
  4. METFORMIN [Concomitant]
     Dosage: 1 G, DAILY
     Route: 048
     Dates: end: 20071101
  5. OMEPRAZOLE [Concomitant]
     Dosage: 40 MG, DAILY
     Route: 048
     Dates: end: 20071101
  6. PARACETAMOL [Concomitant]
     Dosage: UNK
  7. IPRATROPIUM [Concomitant]

REACTIONS (3)
  - BONE MARROW FAILURE [None]
  - DISEASE PROGRESSION [None]
  - SEPSIS [None]
